FAERS Safety Report 20568494 (Version 1)
Quarter: 2022Q1

REPORT INFORMATION
  Report Type: Spontaneous
  Country: TN (occurrence: TN)
  Receive Date: 20220308
  Receipt Date: 20220308
  Transmission Date: 20220424
  Serious: Yes (Other)
  Sender: FDA-Public Use
  Company Number: TN-PFIZER INC-202200331817

PATIENT
  Age: 31 Year
  Sex: Female

DRUGS (2)
  1. METHYLPREDNISOLONE [Suspect]
     Active Substance: METHYLPREDNISOLONE
     Indication: Chronic kidney disease
     Dosage: 3 BOLI
  2. CYCLOPHOSPHAMIDE [Suspect]
     Active Substance: CYCLOPHOSPHAMIDE
     Indication: Chronic kidney disease
     Dosage: BOLUS

REACTIONS (5)
  - Herpes zoster [Unknown]
  - Lymphopenia [Unknown]
  - Diarrhoea [Unknown]
  - COVID-19 [Unknown]
  - Off label use [Unknown]
